FAERS Safety Report 8401305-X (Version None)
Quarter: 2012Q2

REPORT INFORMATION
  Report Type: 
  Country: None (occurrence: None)
  Receive Date: 20120530
  Receipt Date: 20120530
  Transmission Date: 20120825
  Serious: Yes (Hospitalization)
  Sender: FDA-Public Use
  Company Number: None

PATIENT
  Age: 56 Year
  Sex: Female
  Weight: 70.3075 kg

DRUGS (2)
  1. CYMBALTA [Suspect]
     Indication: FIBROMYALGIA
     Dosage: 30MG 1 DAY
     Dates: start: 20100101, end: 20120111
  2. SAVELLA [Suspect]
     Indication: FIBROMYALGIA
     Dosage: 50 MG 1-DAY
     Dates: start: 20120116, end: 20120403

REACTIONS (11)
  - AGITATION [None]
  - AGGRESSION [None]
  - DYSPNOEA [None]
  - PALPITATIONS [None]
  - MULTI-ORGAN DISORDER [None]
  - SUICIDAL IDEATION [None]
  - INSOMNIA [None]
  - CEREBRAL DISORDER [None]
  - MANIA [None]
  - TREMOR [None]
  - ANXIETY [None]
